FAERS Safety Report 21364630 (Version 2)
Quarter: 2022Q4

REPORT INFORMATION
  Report Type: Spontaneous
  Country: BR (occurrence: None)
  Receive Date: 20220922
  Receipt Date: 20221103
  Transmission Date: 20230113
  Serious: Yes (Other)
  Sender: FDA-Public Use
  Company Number: BR-US-Provell Pharmaceuticals LLC-9352313

PATIENT
  Age: 3 Month
  Sex: Male
  Weight: 3 kg

DRUGS (1)
  1. LEVOTHYROXINE SODIUM [Suspect]
     Active Substance: LEVOTHYROXINE SODIUM
     Indication: Hypothyroidism
     Route: 064

REACTIONS (7)
  - Haematochezia [Recovering/Resolving]
  - Flatulence [Recovering/Resolving]
  - Milk allergy [Recovering/Resolving]
  - Dermatitis [Recovering/Resolving]
  - Poor quality sleep [Unknown]
  - Foetal exposure during pregnancy [Recovered/Resolved]
  - Maternal exposure during breast feeding [Not Recovered/Not Resolved]

NARRATIVE: CASE EVENT DATE: 20220609
